FAERS Safety Report 9339389 (Version 5)
Quarter: 2014Q3

REPORT INFORMATION
  Report Type: Report from Study
  Country: US (occurrence: US)
  Receive Date: 20130610
  Receipt Date: 20140912
  Transmission Date: 20150326
  Serious: Yes (Other)
  Sender: FDA-Public Use
  Company Number: US-SANOFI-AVENTIS-2013SA057659

PATIENT
  Age: 48 Year
  Sex: Female

DRUGS (2)
  1. AUBAGIO [Suspect]
     Active Substance: TERIFLUNOMIDE
     Indication: MULTIPLE SCLEROSIS
     Route: 048
     Dates: start: 20140820
  2. AUBAGIO [Suspect]
     Active Substance: TERIFLUNOMIDE
     Indication: MULTIPLE SCLEROSIS
     Route: 048
     Dates: start: 20121130, end: 20140115

REACTIONS (11)
  - Hepatic neoplasm [Unknown]
  - CREST syndrome [Not Recovered/Not Resolved]
  - Multiple sclerosis relapse [Unknown]
  - Fatigue [Unknown]
  - Abdominal distension [Unknown]
  - Pain in extremity [Unknown]
  - Ultrasound pelvis abnormal [Unknown]
  - Optic neuritis [Unknown]
  - Gastrointestinal ulcer [Unknown]
  - Small intestinal bacterial overgrowth [Unknown]
  - Muscular weakness [Unknown]

NARRATIVE: CASE EVENT DATE: 2012
